FAERS Safety Report 17498652 (Version 2)
Quarter: 2020Q1

REPORT INFORMATION
  Report Type: Spontaneous
  Country: US (occurrence: US)
  Receive Date: 20200304
  Receipt Date: 20200331
  Transmission Date: 20200409
  Serious: No
  Sender: FDA-Public Use
  Company Number: US-VIFOR (INTERNATIONAL) INC.-VIT-2020-04036

PATIENT
  Age: 72 Year
  Sex: Male
  Weight: 69.92 kg

DRUGS (15)
  1. BUTALBITAL [Concomitant]
     Active Substance: BUTALBITAL
     Indication: HEADACHE
  2. TOBRAMYCIN. [Concomitant]
     Active Substance: TOBRAMYCIN
  3. INSULIN [Concomitant]
     Active Substance: INSULIN NOS
  4. POLYETHYLENE GLYCOL [Concomitant]
     Active Substance: POLYETHYLENE GLYCOLS
  5. PRAVASTATIN. [Concomitant]
     Active Substance: PRAVASTATIN
  6. MAGNESIUM OXIDE. [Concomitant]
     Active Substance: MAGNESIUM OXIDE
  7. PANTOPRAZOLE [Concomitant]
     Active Substance: PANTOPRAZOLE
  8. VELTASSA [Suspect]
     Active Substance: PATIROMER
     Indication: BLOOD POTASSIUM INCREASED
     Dates: start: 202002
  9. ASPIRIN. [Concomitant]
     Active Substance: ASPIRIN
  10. SODIUM BICARBONATE. [Concomitant]
     Active Substance: SODIUM BICARBONATE
  11. CARVEDILOL. [Concomitant]
     Active Substance: CARVEDILOL
  12. AMLODIPINE [Concomitant]
     Active Substance: AMLODIPINE BESYLATE
  13. FUROSEMIDE. [Concomitant]
     Active Substance: FUROSEMIDE
  14. CALCIFEROL [Concomitant]
  15. PANACEA [Concomitant]

REACTIONS (2)
  - Product preparation error [Unknown]
  - Off label use [Unknown]

NARRATIVE: CASE EVENT DATE: 202002
